FAERS Safety Report 4359588-1 (Version None)
Quarter: 2004Q2

REPORT INFORMATION
  Report Type: 
  Country: None (occurrence: None)
  Receive Date: 20040512
  Receipt Date: 20040428
  Transmission Date: 20050107
  Serious: Yes (Other)
  Sender: FDA-Public Use
  Company Number: GBS040414745

PATIENT
  Age: 31 Year
  Sex: Male
  Weight: 78 kg

DRUGS (4)
  1. XIGRIS [Suspect]
     Indication: MULTI-ORGAN FAILURE
     Dosage: 24 UG/KG/HR
     Dates: start: 20040404
  2. XIGRIS [Suspect]
     Indication: SEPSIS
     Dosage: 24 UG/KG/HR
     Dates: start: 20040404
  3. ANTIBIOTICS [Concomitant]
  4. INSULIN [Concomitant]

REACTIONS (1)
  - PLATELET COUNT DECREASED [None]
